FAERS Safety Report 23432551 (Version 1)
Quarter: 2024Q1

REPORT INFORMATION
  Report Type: Spontaneous
  Country: BR (occurrence: BR)
  Receive Date: 20240123
  Receipt Date: 20240123
  Transmission Date: 20240410
  Serious: Yes (Other)
  Sender: FDA-Public Use
  Company Number: BR-009507513-2401BRA011090

PATIENT
  Sex: Male

DRUGS (1)
  1. LETERMOVIR [Suspect]
     Active Substance: LETERMOVIR
     Dosage: FOR 100 DAYS
     Route: 048

REACTIONS (1)
  - Graft versus host disease [Unknown]
